FAERS Safety Report 17917392 (Version 4)
Quarter: 2022Q1

REPORT INFORMATION
  Report Type: Spontaneous
  Country: FR (occurrence: FR)
  Receive Date: 20200619
  Receipt Date: 20220207
  Transmission Date: 20220423
  Serious: Yes (Death, Other)
  Sender: FDA-Public Use
  Company Number: NVSC2020FR168967

PATIENT
  Age: 56 Year
  Sex: Female
  Weight: 87 kg

DRUGS (8)
  1. DESFERAL [Suspect]
     Active Substance: DEFEROXAMINE MESYLATE
     Indication: Product used for unknown indication
     Dosage: UNK
     Route: 065
  2. DEFITELIO [Suspect]
     Active Substance: DEFIBROTIDE SODIUM
     Indication: Prophylaxis
     Dosage: 28 MICROGRAM/KILOGRAM, QD
     Route: 042
     Dates: start: 20180305, end: 20180318
  3. DEFITELIO [Suspect]
     Active Substance: DEFIBROTIDE SODIUM
     Indication: Pulmonary veno-occlusive disease
  4. DEFITELIO [Suspect]
     Active Substance: DEFIBROTIDE SODIUM
     Indication: Venoocclusive liver disease
  5. FOSCAVIR [Suspect]
     Active Substance: FOSCARNET SODIUM
     Indication: Disease recurrence
     Dosage: UNK
     Route: 042
     Dates: start: 20180228, end: 20180315
  6. CILASTATIN SODIUM\IMIPENEM [Suspect]
     Active Substance: CILASTATIN SODIUM\IMIPENEM
     Indication: Sepsis
     Dosage: 1 GRAM
     Route: 042
     Dates: start: 20180307, end: 20180312
  7. PIPERACILLIN SODIUM\TAZOBACTAM SODIUM [Suspect]
     Active Substance: PIPERACILLIN SODIUM\TAZOBACTAM SODIUM
     Indication: Pyrexia
     Dosage: 4 G, Q6H (4 G, QID)
     Route: 042
     Dates: start: 20180222, end: 20180302
  8. PIPERACILLIN SODIUM\TAZOBACTAM SODIUM [Suspect]
     Active Substance: PIPERACILLIN SODIUM\TAZOBACTAM SODIUM
     Indication: Diarrhoea

REACTIONS (8)
  - Pulmonary toxicity [Fatal]
  - Multiple organ dysfunction syndrome [Fatal]
  - Venoocclusive disease [Fatal]
  - Hepatitis A [Fatal]
  - Cholestasis [Unknown]
  - Intermenstrual bleeding [Unknown]
  - Off label use [Unknown]
  - Drug ineffective [Unknown]

NARRATIVE: CASE EVENT DATE: 20180305
